FAERS Safety Report 5917502-9 (Version None)
Quarter: 2008Q4

REPORT INFORMATION
  Report Type: 
  Country: None (occurrence: None)
  Receive Date: 20081010
  Receipt Date: 20081010
  Transmission Date: 20090506
  Serious: No
  Sender: FDA-Public Use
  Company Number: None

PATIENT
  Age: 23 Year
  Sex: Male
  Weight: 65.7716 kg

DRUGS (2)
  1. CIPROFLOXACIN [Suspect]
     Indication: PROSTATITIS
     Dosage: 500MG 2X/DAY FOR 4 PO
     Route: 048
     Dates: start: 19921210, end: 19930110
  2. OFOLOXIN 500MG [Suspect]
     Indication: PROSTATITIS
     Dosage: 500MG 2X/DAY FOR 2 WEEKS PO
     Route: 048
     Dates: start: 19920210, end: 19920224

REACTIONS (6)
  - ARTHRITIS [None]
  - CONNECTIVE TISSUE DISORDER [None]
  - FATIGUE [None]
  - MULTIPLE CHEMICAL SENSITIVITY [None]
  - PAIN [None]
  - TENDONITIS [None]
